FAERS Safety Report 5097559-0 (Version None)
Quarter: 2006Q3

REPORT INFORMATION
  Report Type: 
  Country: None (occurrence: None)
  Receive Date: 20060901
  Receipt Date: 20060823
  Transmission Date: 20061208
  Serious: Yes (Other)
  Sender: FDA-Public Use
  Company Number: 2006079887

PATIENT
  Age: 44 Year
  Sex: Male

DRUGS (4)
  1. DILANTIN [Suspect]
     Indication: EPILEPSY
     Dosage: (100 MG)
     Dates: start: 19800101
  2. TEGRETOL [Concomitant]
  3. VALPROIC ACID [Concomitant]
  4. ZYPREXA [Concomitant]

REACTIONS (6)
  - DRUG HYPERSENSITIVITY [None]
  - GINGIVAL DISORDER [None]
  - MALAISE [None]
  - TOOTH DISORDER [None]
  - TOOTH LOSS [None]
  - VOMITING [None]
